FAERS Safety Report 4586978-4 (Version None)
Quarter: 2005Q1

REPORT INFORMATION
  Report Type: 
  Country: None (occurrence: None)
  Receive Date: 20050218
  Receipt Date: 20050214
  Transmission Date: 20050727
  Serious: Yes (Hospitalization)
  Sender: FDA-Public Use
  Company Number: GB-JNJFOC-20050203627

PATIENT
  Age: 77 Year
  Sex: Male

DRUGS (6)
  1. IBUPROFEN [Suspect]
     Indication: HEADACHE
     Dosage: 2 TABLETS, ORAL
     Route: 049
  2. BENDROFLUAZIDE [Concomitant]
     Route: 049
  3. TRAMADOL HCL [Concomitant]
     Route: 049
  4. HYDROCORTISONE [Concomitant]
     Route: 049
  5. ATENOLOL [Concomitant]
     Route: 049
  6. THYROXINE [Concomitant]
     Route: 049

REACTIONS (2)
  - BARRETT'S OESOPHAGUS [None]
  - HAEMATEMESIS [None]
